FAERS Safety Report 14987176 (Version 1)
Quarter: 2018Q2

REPORT INFORMATION
  Report Type: Spontaneous
  Country: GB (occurrence: GB)
  Receive Date: 20180608
  Receipt Date: 20180608
  Transmission Date: 20180711
  Serious: Yes (Other)
  Sender: FDA-Public Use
  Company Number: GB-ASTELLAS-2018US025405

PATIENT
  Age: 48 Year
  Sex: Female

DRUGS (1)
  1. VESICARE [Suspect]
     Active Substance: SOLIFENACIN SUCCINATE
     Indication: HYPERTONIC BLADDER
     Dosage: 5 MG (1 DF), ONCE DAILY
     Route: 048
     Dates: end: 20180530

REACTIONS (7)
  - Depression [Unknown]
  - Hair texture abnormal [Unknown]
  - Hair injury [Unknown]
  - Crying [Unknown]
  - Emotional distress [Unknown]
  - Dry mouth [Unknown]
  - Headache [Unknown]

NARRATIVE: CASE EVENT DATE: 201805
